FAERS Safety Report 4580558-2 (Version None)
Quarter: 2005Q1

REPORT INFORMATION
  Report Type: 
  Country: None (occurrence: None)
  Receive Date: 20050214
  Receipt Date: 20040412
  Transmission Date: 20050727
  Serious: No
  Sender: FDA-Public Use
  Company Number: US-GLAXOSMITHKLINE-A0506868A

PATIENT
  Sex: Female

DRUGS (2)
  1. LAMICTAL [Suspect]
     Route: 048
  2. WELLBUTRIN XL [Concomitant]
     Dosage: 300MG PER DAY
     Route: 048

REACTIONS (2)
  - DEPRESSION [None]
  - MANIA [None]
